FAERS Safety Report 7085986-1 (Version None)
Quarter: 2010Q4

REPORT INFORMATION
  Report Type: 
  Country: None (occurrence: None)
  Receive Date: 20101105
  Receipt Date: 20101025
  Transmission Date: 20110411
  Serious: Yes (Hospitalization)
  Sender: FDA-Public Use
  Company Number: PL-ELI_LILLY_AND_COMPANY-PL201010005595

PATIENT
  Sex: Male
  Weight: 45.5 kg

DRUGS (6)
  1. NECITUMUMAB (11F8) (LY3012211) [Suspect]
     Indication: NON-SMALL CELL LUNG CANCER
     Dosage: 800 MG, UNK
     Dates: start: 20101001
  2. GEMCITABINE HCL [Suspect]
     Indication: NON-SMALL CELL LUNG CANCER
     Dosage: 1412 MG, UNK
     Dates: start: 20101001
  3. CISPLATIN [Suspect]
     Indication: NON-SMALL CELL LUNG CANCER
     Dosage: 114 MG, UNK
     Dates: start: 20101001
  4. SPIRIVA [Concomitant]
     Dosage: 18 MG, UNK
  5. DEFLEGMIN [Concomitant]
     Dosage: 30 MG X 2
     Dates: start: 20101021, end: 20101029
  6. DEXAMETHASONE [Concomitant]
     Dosage: 3-3-2 MG, UNK

REACTIONS (1)
  - RESPIRATORY TRACT INFECTION [None]
